FAERS Safety Report 24576947 (Version 1)
Quarter: 2024Q4

REPORT INFORMATION
  Report Type: Spontaneous
  Country: FR (occurrence: FR)
  Receive Date: 20241104
  Receipt Date: 20241104
  Transmission Date: 20250114
  Serious: Yes (Hospitalization)
  Sender: ABBVIE
  Company Number: None

PATIENT
  Age: 74 Year
  Sex: Female
  Weight: 62 kg

DRUGS (2)
  1. BOTOX [Suspect]
     Active Substance: ONABOTULINUMTOXINA
     Indication: Salivary hypersecretion
     Dosage: TIME INTERVAL: AS NECESSARY: 100 INTERNATIONAL UNIT
     Route: 030
     Dates: start: 20241010, end: 20241010
  2. BOTOX [Suspect]
     Active Substance: ONABOTULINUMTOXINA
     Indication: Salivary hypersecretion
     Dosage: TIME INTERVAL: AS NECESSARY: 100 INTERNATIONAL UNIT
     Route: 030
     Dates: start: 202410, end: 202410

REACTIONS (3)
  - Neuromuscular toxicity [Recovered/Resolved]
  - Dyspnoea [Not Recovered/Not Resolved]
  - Dysphagia [Recovered/Resolved]

NARRATIVE: CASE EVENT DATE: 20241013
